FAERS Safety Report 5772322-3 (Version None)
Quarter: 2008Q2

REPORT INFORMATION
  Report Type: 
  Country: None (occurrence: None)
  Receive Date: 20080613
  Receipt Date: 20080605
  Transmission Date: 20081010
  Serious: Yes (Other)
  Sender: FDA-Public Use
  Company Number: GB-ROCHE-568981

PATIENT
  Age: 17 Year
  Sex: Male

DRUGS (2)
  1. ISOTRETINOIN [Suspect]
     Indication: ACNE
     Route: 048
     Dates: start: 20070901, end: 20080401
  2. FLUORIDE [Concomitant]
     Indication: DENTAL CARE
     Dosage: FLUORIDE MOUTHWASH
     Route: 050
     Dates: start: 20070101, end: 20080501

REACTIONS (1)
  - HYPERKERATOSIS [None]
